FAERS Safety Report 6367624-6 (Version None)
Quarter: 2009Q3

REPORT INFORMATION
  Report Type: 
  Country: None (occurrence: None)
  Receive Date: 20090921
  Receipt Date: 20090917
  Transmission Date: 20100115
  Serious: Yes (Death, Hospitalization, Congenital Anomaly)
  Sender: FDA-Public Use
  Company Number: US-ROXANE LABORATORIES, INC.-2008-BP-13178RO

PATIENT
  Sex: Female

DRUGS (12)
  1. MYCOPHENOLATE MOFETIL [Suspect]
     Indication: DRUG EXPOSURE DURING PREGNANCY
     Dosage: 2000 MG
     Route: 064
  2. MYCOPHENOLATE MOFETIL [Suspect]
     Dosage: 1000 MG
     Route: 064
  3. PREDNISONE [Suspect]
     Indication: DRUG EXPOSURE DURING PREGNANCY
     Route: 064
  4. PREDNISONE [Suspect]
     Dosage: 5 MG
     Route: 064
  5. TACROLIMUS [Suspect]
     Indication: DRUG EXPOSURE DURING PREGNANCY
     Route: 064
  6. TACROLIMUS [Suspect]
     Dosage: 10 MG
     Route: 064
  7. ANTIBIOTICS [Suspect]
     Indication: DRUG EXPOSURE DURING PREGNANCY
     Route: 064
  8. VITAMIN TAB [Suspect]
     Indication: DRUG EXPOSURE DURING PREGNANCY
     Route: 064
  9. FOLIC ACID [Suspect]
     Indication: DRUG EXPOSURE DURING PREGNANCY
     Route: 064
  10. BACTRIM [Suspect]
     Indication: INFECTION PROPHYLAXIS
     Dosage: 1600 MG
     Route: 064
  11. ACYCLOVIR [Suspect]
     Indication: INFECTION PROPHYLAXIS
     Dosage: 800 MG
     Route: 064
  12. BROAD SPECTRUM ANTIBIOTICS [Concomitant]
     Indication: PNEUMONIA

REACTIONS (24)
  - CARDIOPULMONARY FAILURE [None]
  - CATARACT [None]
  - CLEFT LIP AND PALATE [None]
  - COLOBOMA [None]
  - CONGENITAL CENTRAL NERVOUS SYSTEM ANOMALY [None]
  - CONGENITAL MUSCULOSKELETAL ANOMALY [None]
  - CYTOGENETIC ABNORMALITY [None]
  - DOUBLE OUTLET RIGHT VENTRICLE [None]
  - FEEDING DISORDER NEONATAL [None]
  - FINGER DEFORMITY [None]
  - FLUORESCENT IN SITU HYBRIDISATION [None]
  - HEART DISEASE CONGENITAL [None]
  - HYPERTELORISM OF ORBIT [None]
  - INTESTINAL MALROTATION [None]
  - MICROPHTHALMOS [None]
  - MICROTIA [None]
  - MITRAL VALVE STENOSIS [None]
  - NECROSIS [None]
  - PNEUMONIA [None]
  - PULMONARY HYPERTENSIVE CRISIS [None]
  - RESPIRATORY DISTRESS [None]
  - RIB DEFORMITY [None]
  - STEAL SYNDROME [None]
  - VENTRICULAR HYPOPLASIA [None]
